FAERS Safety Report 4513413-4 (Version None)
Quarter: 2004Q4

REPORT INFORMATION
  Report Type: 
  Country: None (occurrence: None)
  Receive Date: 20041130
  Receipt Date: 20040922
  Transmission Date: 20050328
  Serious: Yes (Hospitalization)
  Sender: FDA-Public Use
  Company Number: US-BRISTOL-MYERS SQUIBB COMPANY-12710216

PATIENT
  Age: 64 Year
  Sex: Female
  Weight: 65 kg

DRUGS (12)
  1. ERBITUX [Suspect]
     Indication: COLON CANCER METASTATIC
     Dosage: 4TH INFUSION, STARTED ON 22-APR-04 (400 MG/M2); REC'D TOTAL OF 20 INFUSIONS; LAST ON 22-SEP-04
     Route: 042
     Dates: start: 20040513, end: 20040513
  2. IRINOTECAN HCL [Concomitant]
     Dosage: STARTED ON 22-APR-04
     Dates: start: 20040513, end: 20040513
  3. BENADRYL [Concomitant]
     Indication: PREMEDICATION
     Route: 042
     Dates: start: 20040513, end: 20040513
  4. ATROPINE [Concomitant]
     Dosage: 0.5 MG IV GIVEN IN TWO DIVIDED DOSES DURING CPT-11 INFUSION
     Route: 042
     Dates: start: 20040513, end: 20040513
  5. PAXIL [Concomitant]
  6. EVISTA [Concomitant]
  7. RESTORIL [Concomitant]
     Dosage: DOSAGE FORM = 1 TABLET, TAKEN AT BEDTIME
  8. ATIVAN [Concomitant]
  9. CALCIUM [Concomitant]
     Dosage: DOSAGE FORM = 1 TABLET
  10. COMPAZINE [Concomitant]
     Dosage: 10 MG, ONE TABLET EVERY 6 HOURS AS NEEDED
  11. IMODIUM [Concomitant]
  12. MULTI-VITAMINS [Concomitant]
     Dosage: DOSAGE FORM = 1 TABLET

REACTIONS (4)
  - DERMATITIS ACNEIFORM [None]
  - DIARRHOEA [None]
  - NAUSEA [None]
  - VOMITING [None]
